FAERS Safety Report 23178071 (Version 2)
Quarter: 2023Q4

REPORT INFORMATION
  Report Type: Report from Study
  Country: US (occurrence: US)
  Receive Date: 20231113
  Receipt Date: 20231116
  Transmission Date: 20240110
  Serious: Yes (Life-Threatening, Other)
  Sender: FDA-Public Use
  Company Number: US-MYLANLABS-2023M1121104

PATIENT
  Age: 3 Decade

DRUGS (1)
  1. SULFAMETHOXAZOLE\TRIMETHOPRIM [Suspect]
     Active Substance: SULFAMETHOXAZOLE\TRIMETHOPRIM
     Indication: Hidradenitis
     Dosage: UNK
     Route: 065

REACTIONS (3)
  - Shock [Recovered/Resolved]
  - Hypersensitivity [Recovered/Resolved]
  - Transaminases abnormal [Recovered/Resolved]
